FAERS Safety Report 6184816-X (Version None)
Quarter: 2009Q2

REPORT INFORMATION
  Report Type: 
  Country: None (occurrence: None)
  Receive Date: 20090508
  Receipt Date: 20090424
  Transmission Date: 20091009
  Serious: Yes (Other)
  Sender: FDA-Public Use
  Company Number: US-PFIZER INC-2008062286

PATIENT
  Sex: Female
  Weight: 50.8 kg

DRUGS (8)
  1. NEURONTIN [Suspect]
     Indication: SYRINGOMYELIA
     Dates: start: 20000901, end: 20000101
  2. NEURONTIN [Suspect]
     Indication: RADICULOPATHY
  3. NEURONTIN [Suspect]
     Indication: PAIN
  4. LYRICA [Suspect]
     Indication: SYRINGOMYELIA
     Route: 048
     Dates: start: 20080612, end: 20080701
  5. MOTRIN [Concomitant]
  6. CODEINE SUL TAB [Concomitant]
  7. TYLENOL [Concomitant]
  8. CALCIUM [Concomitant]

REACTIONS (57)
  - ASTHENIA [None]
  - BACK PAIN [None]
  - BLISTER [None]
  - BREAST DISORDER [None]
  - BRUXISM [None]
  - CATARACT [None]
  - CEREBRAL ISCHAEMIA [None]
  - CONSTIPATION [None]
  - COORDINATION ABNORMAL [None]
  - DEPRESSION [None]
  - DISABILITY [None]
  - DIZZINESS [None]
  - DRY MOUTH [None]
  - DYSURIA [None]
  - EYE MOVEMENT DISORDER [None]
  - FATIGUE [None]
  - FEELING DRUNK [None]
  - FRACTURED SACRUM [None]
  - FRUSTRATION [None]
  - FUNGAL INFECTION [None]
  - GAIT DISTURBANCE [None]
  - GLAUCOMA [None]
  - HOT FLUSH [None]
  - HYPERHIDROSIS [None]
  - HYPERSENSITIVITY [None]
  - ILL-DEFINED DISORDER [None]
  - INCREASED APPETITE [None]
  - INFLAMMATION [None]
  - INFLUENZA [None]
  - INSOMNIA [None]
  - JUDGEMENT IMPAIRED [None]
  - MUSCLE STRAIN [None]
  - MUSCULOSKELETAL PAIN [None]
  - NAIL DISORDER [None]
  - NAIL GROWTH ABNORMAL [None]
  - NASAL CONGESTION [None]
  - OEDEMA PERIPHERAL [None]
  - ONYCHOMADESIS [None]
  - OROPHARYNGEAL PAIN [None]
  - PAIN [None]
  - PAIN IN EXTREMITY [None]
  - PALLOR [None]
  - PHOTOPHOBIA [None]
  - PURPURA [None]
  - PYREXIA [None]
  - RASH [None]
  - SCIATICA [None]
  - SKIN ATROPHY [None]
  - SKIN HAEMORRHAGE [None]
  - SKIN PAPILLOMA [None]
  - SPINAL OSTEOARTHRITIS [None]
  - STRESS [None]
  - TREMOR [None]
  - VAGINAL DISCHARGE [None]
  - VISUAL IMPAIRMENT [None]
  - WALKING AID USER [None]
  - WEIGHT INCREASED [None]
